FAERS Safety Report 13640271 (Version 1)
Quarter: 2017Q2

REPORT INFORMATION
  Report Type: Spontaneous
  Country: CA (occurrence: CA)
  Receive Date: 20170610
  Receipt Date: 20170610
  Transmission Date: 20170830
  Serious: Yes (Other)
  Sender: FDA-Public Use
  Company Number: CA-CONCORDIA PHARMACEUTICALS INC.-GSH201706-003354

PATIENT
  Age: 43 Year
  Sex: Female

DRUGS (3)
  1. SULFASALAZINE. [Concomitant]
     Active Substance: SULFASALAZINE
  2. ENBREL [Suspect]
     Active Substance: ETANERCEPT
     Indication: RHEUMATOID ARTHRITIS
     Route: 058
  3. PLAQUENIL [Suspect]
     Active Substance: HYDROXYCHLOROQUINE SULFATE
     Indication: PRODUCT USED FOR UNKNOWN INDICATION
     Route: 048

REACTIONS (13)
  - Bone erosion [Unknown]
  - Fear of disease [Unknown]
  - Nodule [Unknown]
  - Red blood cell sedimentation rate abnormal [Unknown]
  - Abasia [Unknown]
  - Drug intolerance [Unknown]
  - Synovitis [Unknown]
  - C-reactive protein abnormal [Unknown]
  - Infection [Unknown]
  - Osteitis [Unknown]
  - Blindness unilateral [Unknown]
  - Rheumatoid arthritis [Unknown]
  - Drug ineffective [Unknown]
